FAERS Safety Report 16794273 (Version 1)
Quarter: 2019Q3

REPORT INFORMATION
  Report Type: Spontaneous
  Country: US (occurrence: US)
  Receive Date: 20190911
  Receipt Date: 20190911
  Transmission Date: 20191005
  Serious: No
  Sender: FDA-Public Use
  Company Number: US-ROCHE-2295358

PATIENT
  Sex: Male
  Weight: 82.17 kg

DRUGS (1)
  1. ALECENSA [Suspect]
     Active Substance: ALECTINIB HYDROCHLORIDE
     Indication: BRONCHIAL CARCINOMA
     Dosage: 4 CAPSULES TWICE DAILY
     Route: 048
     Dates: start: 20190306

REACTIONS (4)
  - Dizziness [Unknown]
  - Urticaria [Unknown]
  - Nausea [Unknown]
  - Fatigue [Unknown]
